FAERS Safety Report 10425707 (Version 1)
Quarter: 2014Q3

REPORT INFORMATION
  Report Type: Spontaneous
  Country: IN (occurrence: IN)
  Receive Date: 20140903
  Receipt Date: 20140903
  Transmission Date: 20150326
  Serious: Yes (Death, Hospitalization)
  Sender: FDA-Public Use
  Company Number: IN-ROCHE-1454285

PATIENT
  Age: 47 Year
  Sex: Male

DRUGS (1)
  1. TAMIFLU [Suspect]
     Active Substance: OSELTAMIVIR PHOSPHATE
     Indication: H1N1 INFLUENZA
     Route: 065

REACTIONS (3)
  - Oropharyngeal pain [Fatal]
  - Cough [Fatal]
  - Dyspnoea [Fatal]

NARRATIVE: CASE EVENT DATE: 20140722
